FAERS Safety Report 7790132-2 (Version None)
Quarter: 2011Q3

REPORT INFORMATION
  Report Type: 
  Country: None (occurrence: None)
  Receive Date: 20110930
  Receipt Date: 20110421
  Transmission Date: 20111222
  Serious: No
  Sender: FDA-Public Use
  Company Number: US-ASTRAZENECA-2011SE09422

PATIENT
  Age: 75 Year
  Sex: Female

DRUGS (1)
  1. ARIMIDEX [Suspect]
     Route: 048

REACTIONS (10)
  - OEDEMA PERIPHERAL [None]
  - HEADACHE [None]
  - COGNITIVE DISORDER [None]
  - ADVERSE EVENT [None]
  - DIZZINESS [None]
  - ARTHRALGIA [None]
  - ADVERSE DRUG REACTION [None]
  - BONE DISORDER [None]
  - VISION BLURRED [None]
  - DEPRESSION [None]
